FAERS Safety Report 9665140 (Version 1)
Quarter: 2013Q4

REPORT INFORMATION
  Report Type: Spontaneous
  Country: GB (occurrence: GB)
  Receive Date: 20131101
  Receipt Date: 20131101
  Transmission Date: 20140711
  Serious: Yes (Hospitalization, Other)
  Sender: FDA-Public Use
  Company Number: GB-PFIZER INC-2013307153

PATIENT
  Age: 36 Year
  Sex: Male

DRUGS (13)
  1. VENLAFAXINE HCL [Suspect]
     Dosage: UNK
     Route: 065
     Dates: start: 1997, end: 2011
  2. SERTRALINE HCL [Suspect]
     Dosage: UNK
     Route: 065
     Dates: start: 1996, end: 2011
  3. PAROXETINE [Suspect]
     Dosage: UNK
     Route: 065
  4. AMISULPRIDE [Suspect]
     Dosage: UNK
     Route: 065
     Dates: start: 2011
  5. AMISULPRIDE [Suspect]
     Dosage: 50 MG, UNK
     Dates: end: 2011
  6. CHLORPROMAZINE [Suspect]
     Dosage: UNK
     Route: 065
     Dates: end: 2011
  7. LITHIUM [Suspect]
     Dosage: UNK
     Route: 065
     Dates: start: 199801
  8. LITHIUM [Suspect]
     Dosage: UNK
     Route: 065
     Dates: start: 2002, end: 2011
  9. SEROQUEL XL [Suspect]
     Indication: PSYCHOTIC DISORDER
     Dosage: 600 MG, 1X/DAY
     Route: 048
     Dates: start: 2012
  10. SEROQUEL XL [Suspect]
     Dosage: 600 MG, 1X/DAY
  11. SEROQUEL XL [Suspect]
     Dosage: 700 MG, 1X/DAY
     Route: 048
     Dates: start: 201202
  12. ZOPICLONE [Suspect]
  13. SONDATE XL [Suspect]
     Indication: PSYCHOTIC DISORDER
     Dosage: 700 MG, UNK
     Route: 065
     Dates: start: 2012

REACTIONS (22)
  - Convulsion [Unknown]
  - Suspected counterfeit product [Unknown]
  - Insomnia [Unknown]
  - Mania [Unknown]
  - Weight decreased [Unknown]
  - Feeling abnormal [Unknown]
  - Hypomania [Unknown]
  - Drug ineffective [Unknown]
  - Oromandibular dystonia [Unknown]
  - Drug effect decreased [Unknown]
  - Mania [Unknown]
  - Depression suicidal [Unknown]
  - Mood swings [Unknown]
  - Cerebrovascular accident [Unknown]
  - Mental disorder [Unknown]
  - Psychotic disorder [Unknown]
  - Tourette^s disorder [Unknown]
  - Dissociative disorder [Unknown]
  - Nervous system disorder [Unknown]
  - Blood prolactin increased [Unknown]
  - Blood oestrogen increased [Unknown]
  - Blood testosterone decreased [Unknown]
